FAERS Safety Report 9768234 (Version 1)
Quarter: 2013Q4

REPORT INFORMATION
  Report Type: Spontaneous
  Country: US (occurrence: US)
  Receive Date: 20131217
  Receipt Date: 20131217
  Transmission Date: 20140711
  Serious: No
  Sender: FDA-Public Use
  Company Number: US-009507513-1312USA005569

PATIENT
  Age: 65 Year
  Sex: Female

DRUGS (4)
  1. NITRO-DUR [Suspect]
     Indication: VASOSPASM
     Dosage: UNK
  2. ASPIRIN [Concomitant]
     Dosage: 325 MG
  3. PLAVIX [Concomitant]
     Dosage: 600 MG, UNK
  4. LOVENOX [Concomitant]
     Dosage: APPROPRIATE WEIGHT BASED DOSE

REACTIONS (1)
  - Drug ineffective [Unknown]
